FAERS Safety Report 9826911 (Version 1)
Quarter: 2014Q1

REPORT INFORMATION
  Report Type: Spontaneous
  Country: US (occurrence: US)
  Receive Date: 20140117
  Receipt Date: 20140117
  Transmission Date: 20141002
  Serious: No
  Sender: FDA-Public Use
  Company Number: US-PFIZER INC-2014011411

PATIENT
  Sex: 0

DRUGS (1)
  1. ADVIL [Suspect]
     Indication: PAIN
     Dosage: UNK

REACTIONS (3)
  - Oesophageal disorder [Unknown]
  - Gastric disorder [Unknown]
  - Dysphagia [Unknown]
